FAERS Safety Report 20177462 (Version 1)
Quarter: 2021Q4

REPORT INFORMATION
  Report Type: Spontaneous
  Country: US (occurrence: None)
  Receive Date: 20211212
  Receipt Date: 20211212
  Transmission Date: 20220303
  Serious: Yes (Hospitalization, Disabling)
  Sender: FDA-Public Use
  Company Number: None

PATIENT
  Age: 43 Year
  Sex: Female
  Weight: 63.45 kg

DRUGS (5)
  1. SULFAMETHAZINE\TRIMETHOPRIM [Suspect]
     Active Substance: SULFAMETHAZINE\TRIMETHOPRIM
     Indication: Eye infection
     Dosage: OTHER QUANTITY : 1 TABLET(S);?FREQUENCY : DAILY;?
     Route: 048
     Dates: start: 20211111, end: 20211111
  2. RIZATRIPTAN [Concomitant]
     Active Substance: RIZATRIPTAN
  3. VITAMIN D [Concomitant]
     Active Substance: VITAMIN D NOS
  4. CELLWISE [Concomitant]
  5. VITAMINS [Concomitant]
     Active Substance: VITAMINS

REACTIONS (3)
  - Neuralgia [None]
  - Arthralgia [None]
  - Drug hypersensitivity [None]

NARRATIVE: CASE EVENT DATE: 20211111
